FAERS Safety Report 10607748 (Version 4)
Quarter: 2015Q1

REPORT INFORMATION
  Report Type: Spontaneous
  Country: JP (occurrence: JP)
  Receive Date: 20141125
  Receipt Date: 20150209
  Transmission Date: 20150720
  Serious: Yes (Hospitalization)
  Sender: FDA-Public Use
  Company Number: JP-JNJFOC-20141112498

PATIENT
  Age: 76 Year
  Sex: Male
  Weight: 56 kg

DRUGS (5)
  1. GLACTIV [Concomitant]
     Active Substance: SITAGLIPTIN
     Indication: DIABETES MELLITUS
     Route: 048
  2. ZYTIGA [Suspect]
     Active Substance: ABIRATERONE ACETATE
     Indication: PROSTATE CANCER
     Route: 048
     Dates: start: 20141119
  3. PREDONINE [Suspect]
     Active Substance: PREDNISOLONE\PREDNISOLONE ACETATE\PREDNISOLONE SODIUM SUCCINATE
     Indication: PROSTATE CANCER
     Route: 048
     Dates: start: 20141119
  4. PREDONINE [Suspect]
     Active Substance: PREDNISOLONE\PREDNISOLONE ACETATE\PREDNISOLONE SODIUM SUCCINATE
     Indication: PROSTATE CANCER
     Route: 048
     Dates: start: 20141022, end: 20141105
  5. ZYTIGA [Suspect]
     Active Substance: ABIRATERONE ACETATE
     Indication: PROSTATE CANCER
     Route: 048
     Dates: start: 20141022, end: 20141105

REACTIONS (1)
  - Pneumonia bacterial [Recovered/Resolved]

NARRATIVE: CASE EVENT DATE: 20141026
